FAERS Safety Report 25527952 (Version 1)
Quarter: 2025Q3

REPORT INFORMATION
  Report Type: Spontaneous
  Country: EU (occurrence: EU)
  Receive Date: 20250708
  Receipt Date: 20250708
  Transmission Date: 20251020
  Serious: Yes (Other)
  Sender: AMGEN
  Company Number: EU-AMGEN-FRASP2025130759

PATIENT
  Age: 71 Year
  Sex: Male

DRUGS (2)
  1. ETANERCEPT [Suspect]
     Active Substance: ETANERCEPT
     Indication: Rheumatoid arthritis
     Dosage: 25 MILLIGRAM, 2 TIMES/WK
     Route: 065
     Dates: start: 200610, end: 200903
  2. ADALIMUMAB [Concomitant]
     Active Substance: ADALIMUMAB
     Indication: Product used for unknown indication
     Dosage: 40 MILLIGRAM, Q2WK
     Route: 065
     Dates: start: 2009

REACTIONS (2)
  - Scleritis [Recovered/Resolved]
  - Rheumatoid arthritis [Unknown]

NARRATIVE: CASE EVENT DATE: 20090101
